FAERS Safety Report 17361426 (Version 1)
Quarter: 2020Q1

REPORT INFORMATION
  Report Type: Spontaneous
  Country: US (occurrence: US)
  Receive Date: 20200203
  Receipt Date: 20200203
  Transmission Date: 20200409
  Serious: No
  Sender: FDA-Public Use
  Company Number: US-PFIZER INC-2020041565

PATIENT
  Sex: Female

DRUGS (1)
  1. ALPRAZOLAM. [Suspect]
     Active Substance: ALPRAZOLAM
     Dosage: 0.125 MG, (ONLY TAKES A HALF OF PILL )

REACTIONS (8)
  - Product dose omission [Unknown]
  - Anxiety [Unknown]
  - Food allergy [Unknown]
  - Intentional product use issue [Unknown]
  - Throat tightness [Unknown]
  - Sensation of foreign body [Unknown]
  - Condition aggravated [Unknown]
  - Panic attack [Unknown]
